FAERS Safety Report 9903430 (Version 2)
Quarter: 2014Q1

REPORT INFORMATION
  Report Type: Spontaneous
  Country: US (occurrence: US)
  Receive Date: 20140217
  Receipt Date: 20140217
  Transmission Date: 20141002
  Serious: No
  Sender: FDA-Public Use
  Company Number: US-GILEAD-2012-0052454

PATIENT
  Sex: Female

DRUGS (1)
  1. LETAIRIS [Suspect]
     Indication: PULMONARY HYPERTENSION
     Dosage: 10 MG, UNK
     Route: 048
     Dates: start: 20090509

REACTIONS (5)
  - Respiratory tract infection [Unknown]
  - Lower respiratory tract infection bacterial [Unknown]
  - Bronchial obstruction [Unknown]
  - Cough [Unknown]
  - Oropharyngeal pain [Unknown]
